FAERS Safety Report 8523510-4 (Version None)
Quarter: 2012Q3

REPORT INFORMATION
  Report Type: 
  Country: None (occurrence: None)
  Receive Date: 20120720
  Receipt Date: 20120712
  Transmission Date: 20120928
  Serious: Yes (Hospitalization)
  Sender: FDA-Public Use
  Company Number: DE-JNJFOC-20120707134

PATIENT
  Age: 76 Year
  Sex: Female

DRUGS (2)
  1. REMICADE [Suspect]
     Indication: COLITIS ULCERATIVE
     Route: 042
     Dates: start: 20100927
  2. METHOTREXATE [Concomitant]
     Route: 065

REACTIONS (3)
  - HERPES ZOSTER [None]
  - HERPES ZOSTER OPHTHALMIC [None]
  - MENINGITIS [None]
